FAERS Safety Report 8770208 (Version 5)
Quarter: 2015Q2

REPORT INFORMATION
  Report Type: Spontaneous
  Country: US (occurrence: US)
  Receive Date: 20120906
  Receipt Date: 20150428
  Transmission Date: 20150821
  Serious: No
  Sender: FDA-Public Use
  Company Number: US-009507513-1208USA012609

PATIENT
  Sex: Male
  Weight: 77.98 kg

DRUGS (1)
  1. PROPECIA [Suspect]
     Active Substance: FINASTERIDE
     Indication: ANDROGENETIC ALOPECIA
     Dosage: 1 MG, QD
     Route: 048
     Dates: start: 200906, end: 200909

REACTIONS (30)
  - Blood testosterone decreased [Unknown]
  - Fatigue [Unknown]
  - Cognitive disorder [Not Recovered/Not Resolved]
  - Disturbance in attention [Unknown]
  - Partner stress [Unknown]
  - Fall [Unknown]
  - Concussion [Unknown]
  - Exercise tolerance decreased [Unknown]
  - Erectile dysfunction [Unknown]
  - Rash generalised [Unknown]
  - Drug ineffective [Unknown]
  - Blood luteinising hormone increased [Recovering/Resolving]
  - Hypothalamo-pituitary disorder [Unknown]
  - Asthenia [Unknown]
  - Pituitary tumour benign [Unknown]
  - Insomnia [Unknown]
  - Amnesia [Unknown]
  - Sexual dysfunction [Not Recovered/Not Resolved]
  - Blood testosterone free increased [Recovered/Resolved]
  - Irritability [Unknown]
  - Anxiety [Recovered/Resolved]
  - Weight decreased [Unknown]
  - Hypogonadism [Unknown]
  - Blood luteinising hormone decreased [Unknown]
  - Loss of libido [Unknown]
  - Malaise [Unknown]
  - Hypothalamo-pituitary disorder [Unknown]
  - Blood follicle stimulating hormone decreased [Unknown]
  - Acne [Unknown]
  - Depression [Unknown]

NARRATIVE: CASE EVENT DATE: 200906
